FAERS Safety Report 6582641-9 (Version None)
Quarter: 2010Q1

REPORT INFORMATION
  Report Type: 
  Country: None (occurrence: None)
  Receive Date: 20100216
  Receipt Date: 20100204
  Transmission Date: 20100710
  Serious: Yes (Hospitalization)
  Sender: FDA-Public Use
  Company Number: AT-ELI_LILLY_AND_COMPANY-AT201001003896

PATIENT
  Sex: Male
  Weight: 105 kg

DRUGS (4)
  1. ZYPREXA [Suspect]
     Indication: SCHIZOAFFECTIVE DISORDER
     Dosage: 25 MG, DAILY (1/D)
     Route: 048
     Dates: start: 20090701
  2. COMPENSAN [Concomitant]
     Indication: DRUG DEPENDENCE
     Dosage: UNK, UNKNOWN
     Route: 065
  3. DEPAKENE [Concomitant]
     Dosage: 2000 MG, DAILY (1/D)
     Route: 065
  4. TRAZODONE HCL [Concomitant]
     Dosage: 150 MG, DAILY (1/D)
     Route: 065

REACTIONS (4)
  - ABDOMINAL PAIN UPPER [None]
  - DIARRHOEA [None]
  - HYPONATRAEMIA [None]
  - OVERDOSE [None]
